FAERS Safety Report 14501700 (Version 1)
Quarter: 2018Q1

REPORT INFORMATION
  Report Type: Spontaneous
  Country: CA (occurrence: CA)
  Receive Date: 20180206
  Receipt Date: 20180206
  Transmission Date: 20180509
  Serious: Yes (Other)
  Sender: FDA-Public Use
  Company Number: None

PATIENT
  Sex: Female
  Weight: 65.25 kg

DRUGS (4)
  1. VITAMIN D [Concomitant]
     Active Substance: CHOLECALCIFEROL
  2. REMICADE [Suspect]
     Active Substance: INFLIXIMAB
     Indication: CROHN^S DISEASE
     Dosage: OTHER FREQUENCY:ONCE IN 6 WEEKS;?
     Route: 042
     Dates: start: 20161107, end: 20171228
  3. COUMADIN [Concomitant]
     Active Substance: WARFARIN SODIUM
  4. VIT D WITH CALCIUM [Concomitant]

REACTIONS (4)
  - Hypoaesthesia [None]
  - Neuropathy peripheral [None]
  - Paraesthesia [None]
  - Chest pain [None]

NARRATIVE: CASE EVENT DATE: 20171228
